FAERS Safety Report 4505158-1 (Version None)
Quarter: 2004Q4

REPORT INFORMATION
  Report Type: 
  Country: None (occurrence: None)
  Receive Date: 20041116
  Receipt Date: 20041102
  Transmission Date: 20050328
  Serious: Yes (Hospitalization)
  Sender: FDA-Public Use
  Company Number: FABR-10861

PATIENT
  Age: 49 Year
  Sex: Male
  Weight: 71.9 kg

DRUGS (1)
  1. FABRAZYME [Suspect]
     Indication: FABRY'S DISEASE
     Dosage: 70 MG Q2WKS IV
     Route: 042
     Dates: start: 20030730

REACTIONS (5)
  - ARTHRALGIA [None]
  - CELLULITIS [None]
  - CHILLS [None]
  - SELF-MEDICATION [None]
  - TREMOR [None]
